FAERS Safety Report 19582653 (Version 1)
Quarter: 2021Q3

REPORT INFORMATION
  Report Type: Other
  Country: CA (occurrence: CA)
  Receive Date: 20210720
  Receipt Date: 20210720
  Transmission Date: 20211014
  Serious: Yes (Other)
  Sender: FDA-Public Use
  Company Number: CA-ASPEN-GLO2021CA005677

PATIENT

DRUGS (11)
  1. BUSULFAN. [Suspect]
     Active Substance: BUSULFAN
     Indication: ALLOGENIC STEM CELL TRANSPLANTATION
     Dosage: INJECTION
     Route: 065
  2. BUSULFAN. [Suspect]
     Active Substance: BUSULFAN
     Indication: BONE MARROW CONDITIONING REGIMEN
     Dosage: INJECTION
     Route: 065
  3. CYCLOPHOSPHAMIDE. [Suspect]
     Active Substance: CYCLOPHOSPHAMIDE
     Indication: ALLOGENIC STEM CELL TRANSPLANTATION
  4. CYCLOPHOSPHAMIDE. [Suspect]
     Active Substance: CYCLOPHOSPHAMIDE
     Indication: BONE MARROW CONDITIONING REGIMEN
  5. AZACITIDINE. [Suspect]
     Active Substance: AZACITIDINE
     Indication: ALLOGENIC STEM CELL TRANSPLANTATION
  6. AZACITIDINE. [Suspect]
     Active Substance: AZACITIDINE
     Indication: BONE MARROW CONDITIONING REGIMEN
  7. CYCLOPHOSPHAMIDE. [Suspect]
     Active Substance: CYCLOPHOSPHAMIDE
     Indication: PRADER-WILLI SYNDROME
     Dosage: 120 MG/KG
     Route: 065
  8. METHOTREXATE. [Concomitant]
     Active Substance: METHOTREXATE
     Indication: PROPHYLAXIS AGAINST GRAFT VERSUS HOST DISEASE
     Dosage: UNK
     Route: 065
  9. BUSULFAN. [Suspect]
     Active Substance: BUSULFAN
     Indication: PRADER-WILLI SYNDROME
     Dosage: 3.2 MG/KG, 1 EVERY 1 DAYS
     Route: 065
  10. TACROLIMUS. [Concomitant]
     Active Substance: TACROLIMUS
     Indication: PROPHYLAXIS AGAINST GRAFT VERSUS HOST DISEASE
     Dosage: UNK
     Route: 065
  11. AZACITIDINE. [Suspect]
     Active Substance: AZACITIDINE
     Indication: PRADER-WILLI SYNDROME
     Dosage: UNK
     Route: 065

REACTIONS (5)
  - Stomatitis [Unknown]
  - Product use in unapproved indication [Unknown]
  - Hypertension [Unknown]
  - Epstein-Barr virus infection reactivation [Unknown]
  - Staphylococcal bacteraemia [Unknown]
